FAERS Safety Report 5122015-0 (Version None)
Quarter: 2006Q4

REPORT INFORMATION
  Report Type: 
  Country: None (occurrence: None)
  Receive Date: 20061004
  Receipt Date: 20061004
  Transmission Date: 20070319
  Serious: Yes (Other)
  Sender: FDA-Public Use
  Company Number: None

PATIENT
  Age: 68 Year
  Sex: Male
  Weight: 68.5 kg

DRUGS (8)
  1. ASPIRIN [Suspect]
     Dosage: PRIVATE MD , BY MOUTH
     Dates: start: 19900101, end: 19930725
  2. MULTI-VITAMIN [Concomitant]
  3. NITROGLYCERIN [Concomitant]
  4. LISINOPRIL [Concomitant]
  5. ATENOLOL [Concomitant]
  6. FOLIC ACID [Concomitant]
  7. SERTRALINE HCL [Concomitant]
  8. PYRIDOXINE HCL [Concomitant]

REACTIONS (1)
  - PEPTIC ULCER [None]
